FAERS Safety Report 22881945 (Version 2)
Quarter: 2024Q1

REPORT INFORMATION
  Report Type: Spontaneous
  Country: US (occurrence: US)
  Receive Date: 20230830
  Receipt Date: 20240215
  Transmission Date: 20240409
  Serious: Yes (Other)
  Sender: FDA-Public Use
  Company Number: US-HBP-2022US026945

PATIENT
  Age: 64 Year

DRUGS (1)
  1. MECHLORETHAMINE [Suspect]
     Active Substance: MECHLORETHAMINE
     Indication: Cutaneous T-cell lymphoma stage II
     Dosage: UNK, QOD
     Route: 061

REACTIONS (3)
  - Disease progression [Unknown]
  - Off label use [Unknown]
  - Rash [Unknown]
